FAERS Safety Report 21879335 (Version 1)
Quarter: 2023Q1

REPORT INFORMATION
  Report Type: Spontaneous
  Country: IT (occurrence: IT)
  Receive Date: 20230118
  Receipt Date: 20230118
  Transmission Date: 20230418
  Serious: Yes (Other)
  Sender: FDA-Public Use
  Company Number: IT-009507513-2212ITA009495

PATIENT
  Sex: Male
  Weight: 62 kg

DRUGS (5)
  1. PACLITAXEL [Suspect]
     Active Substance: PACLITAXEL
     Indication: Product used for unknown indication
     Dosage: 80 MILLIGRAM
     Dates: start: 202108
  2. PEMBROLIZUMAB [Suspect]
     Active Substance: PEMBROLIZUMAB
     Indication: Head and neck cancer
     Dosage: UNK
     Dates: start: 202110
  3. FLUOROURACIL [Suspect]
     Active Substance: FLUOROURACIL
     Indication: Head and neck cancer
     Dates: start: 202110
  4. CETUXIMAB [Suspect]
     Active Substance: CETUXIMAB
     Indication: Product used for unknown indication
     Dosage: 400 MILLIGRAM
  5. CISPLATIN [Suspect]
     Active Substance: CISPLATIN
     Indication: Head and neck cancer
     Dates: start: 202110

REACTIONS (12)
  - Chest injury [None]
  - Neurotoxicity [None]
  - Neutropenia [None]
  - Metabolic disorder [None]
  - Nodule [None]
  - Lymphadenopathy mediastinal [None]
  - Therapy partial responder [None]
  - Pruritus [None]
  - Asthenia [None]
  - Rash [None]
  - Haematotoxicity [None]
  - Disease recurrence [None]

NARRATIVE: CASE EVENT DATE: 20211001
